FAERS Safety Report 25520846 (Version 2)
Quarter: 2025Q3

REPORT INFORMATION
  Report Type: Spontaneous
  Country: EU (occurrence: EU)
  Receive Date: 20250705
  Receipt Date: 20250715
  Transmission Date: 20251021
  Serious: Yes (Hospitalization, Other)
  Sender: AUROBINDO
  Company Number: EU-Eisai-EC-2025-191038

PATIENT
  Age: 69 Year
  Sex: Male
  Weight: 91 kg

DRUGS (4)
  1. HYDROCORTISONE [Interacting]
     Active Substance: HYDROCORTISONE
     Indication: Adrenal insufficiency
     Dosage: 10 MILLIGRAM, 3 TIMES A DAY
     Route: 065
     Dates: start: 202406
  2. LENVATINIB [Suspect]
     Active Substance: LENVATINIB
     Indication: Metastatic renal cell carcinoma
     Route: 048
     Dates: start: 202412, end: 20250517
  3. PEMBROLIZUMAB [Interacting]
     Active Substance: PEMBROLIZUMAB
     Indication: Metastatic renal cell carcinoma
     Route: 042
     Dates: start: 20241219, end: 20250430
  4. LENVATINIB [Suspect]
     Active Substance: LENVATINIB
     Indication: Metastatic renal cell carcinoma
     Route: 048
     Dates: start: 202412, end: 20250517

REACTIONS (6)
  - Hypothermia [Recovering/Resolving]
  - Diarrhoea [Recovering/Resolving]
  - Hyperglycaemia [Recovering/Resolving]
  - Dehydration [Recovering/Resolving]
  - Fatigue [Recovering/Resolving]
  - Drug interaction [Recovering/Resolving]

NARRATIVE: CASE EVENT DATE: 20250517
